FAERS Safety Report 4631780-8 (Version None)
Quarter: 2005Q2

REPORT INFORMATION
  Report Type: 
  Country: None (occurrence: None)
  Receive Date: 20050407
  Receipt Date: 20050324
  Transmission Date: 20051028
  Serious: Yes (Hospitalization)
  Sender: FDA-Public Use
  Company Number: 2005UW02712

PATIENT
  Age: 33 Year
  Sex: Male
  Weight: 94.575 kg

DRUGS (2)
  1. SEROQUEL [Suspect]
     Indication: BIPOLAR DISORDER
     Dosage: 600 MG HS PO
     Route: 048
     Dates: start: 20050110, end: 20050210
  2. TESSALON [Concomitant]

REACTIONS (13)
  - ALCOHOLISM [None]
  - APNOEA [None]
  - ASPIRATION [None]
  - BRONCHOSPASM [None]
  - CONVULSION [None]
  - DRUG ABUSER [None]
  - FALL [None]
  - LUNG INFILTRATION [None]
  - METABOLIC ACIDOSIS [None]
  - MUSCLE TWITCHING [None]
  - NICOTINE DEPENDENCE [None]
  - TREATMENT NONCOMPLIANCE [None]
  - VOMITING [None]
